FAERS Safety Report 8075532-8 (Version None)
Quarter: 2012Q1

REPORT INFORMATION
  Report Type: 
  Country: None (occurrence: None)
  Receive Date: 20120127
  Receipt Date: 20120120
  Transmission Date: 20120608
  Serious: Yes (Other)
  Sender: FDA-Public Use
  Company Number: JP-PFIZER INC-2012017430

PATIENT
  Age: 78 Year
  Sex: Female

DRUGS (3)
  1. LYRICA [Suspect]
     Indication: SPINAL OSTEOARTHRITIS
     Dosage: UNK
     Route: 048
  2. ADALAT [Concomitant]
  3. CHOLEBRINE [Concomitant]

REACTIONS (3)
  - NEUTROPHIL COUNT DECREASED [None]
  - C-REACTIVE PROTEIN DECREASED [None]
  - NASOPHARYNGITIS [None]
